FAERS Safety Report 5324852-6 (Version None)
Quarter: 2007Q2

REPORT INFORMATION
  Report Type: 
  Country: None (occurrence: None)
  Receive Date: 20070509
  Receipt Date: 20070417
  Transmission Date: 20071010
  Serious: Yes (Death)
  Sender: FDA-Public Use
  Company Number: S07-USA-01796-01

PATIENT
  Age: 45 Year
  Sex: Female

DRUGS (4)
  1. LEXAPRO [Suspect]
     Indication: ANXIETY
     Dosage: 10 MG QD PO
     Route: 048
     Dates: start: 20060101, end: 20060101
  2. SEROQUEL [Concomitant]
  3. BUSPAR [Concomitant]
  4. AMBIEN [Concomitant]

REACTIONS (4)
  - COMPLETED SUICIDE [None]
  - INJURY ASPHYXIATION [None]
  - TOXICOLOGIC TEST ABNORMAL [None]
  - TREATMENT NONCOMPLIANCE [None]
